FAERS Safety Report 4678860-9 (Version None)
Quarter: 2005Q2

REPORT INFORMATION
  Report Type: 
  Country: None (occurrence: None)
  Receive Date: 20050531
  Receipt Date: 20050518
  Transmission Date: 20051028
  Serious: Yes (Other)
  Sender: FDA-Public Use
  Company Number: 2005076711

PATIENT
  Age: 32 Year
  Sex: Female
  Weight: 63.5036 kg

DRUGS (1)
  1. VISINE L.R. [Suspect]
     Indication: HYPERSENSITIVITY
     Dosage: COUPLE OF DROPS TWICE, OPHTHALMIC
     Route: 047
     Dates: start: 20050101, end: 20050101

REACTIONS (2)
  - CONJUNCTIVITIS [None]
  - CORNEAL ABRASION [None]
